FAERS Safety Report 13524837 (Version 1)
Quarter: 2017Q2

REPORT INFORMATION
  Report Type: Spontaneous
  Country: US (occurrence: US)
  Receive Date: 20170508
  Receipt Date: 20170508
  Transmission Date: 20170830
  Serious: No
  Sender: FDA-Public Use
  Company Number: US-ROCHE-1123407

PATIENT
  Sex: Male

DRUGS (7)
  1. AVASTIN [Suspect]
     Active Substance: BEVACIZUMAB
     Indication: APPENDIX CANCER
  2. XELODA [Suspect]
     Active Substance: CAPECITABINE
     Indication: COLON CANCER
     Route: 065
  3. XELODA [Suspect]
     Active Substance: CAPECITABINE
     Indication: APPENDIX CANCER
     Route: 065
     Dates: start: 20070531
  4. FLUOROURACIL ^ROCHE^ [Concomitant]
  5. OXALIPLATIN. [Concomitant]
     Active Substance: OXALIPLATIN
  6. AVASTIN [Suspect]
     Active Substance: BEVACIZUMAB
     Indication: COLON CANCER
     Route: 065
  7. ERBITUX [Concomitant]
     Active Substance: CETUXIMAB

REACTIONS (2)
  - Rash pustular [Unknown]
  - Thrombocytopenia [Unknown]
